FAERS Safety Report 12645381 (Version 1)
Quarter: 2016Q3

REPORT INFORMATION
  Report Type: Spontaneous
  Country: US (occurrence: US)
  Receive Date: 20160811
  Receipt Date: 20160811
  Transmission Date: 20161109
  Serious: No
  Sender: FDA-Public Use
  Company Number: US-JAZZ-2016-US-004645

PATIENT
  Age: 51 Year
  Sex: Male

DRUGS (11)
  1. ZYRTEC [Concomitant]
     Active Substance: CETIRIZINE HYDROCHLORIDE
  2. NALTREXONE [Concomitant]
     Active Substance: NALTREXONE
  3. XYREM [Suspect]
     Active Substance: SODIUM OXYBATE
     Indication: FIBROMYALGIA
     Dosage: 4 G, BID
     Route: 048
     Dates: start: 201410
  4. NUVIGIL [Concomitant]
     Active Substance: ARMODAFINIL
  5. CHOLESTYRAMINE. [Concomitant]
     Active Substance: CHOLESTYRAMINE
  6. COPAXONE [Concomitant]
     Active Substance: GLATIRAMER ACETATE
  7. KLONOPIN [Concomitant]
     Active Substance: CLONAZEPAM
  8. PERCOCET [Concomitant]
     Active Substance: ACETAMINOPHEN\OXYCODONE HYDROCHLORIDE
  9. TRAMADOL HCL [Concomitant]
     Active Substance: TRAMADOL HYDROCHLORIDE
  10. VASOACTIVE INTESTINAL POLYPEPTIDE [Concomitant]
  11. LUNESTA [Concomitant]
     Active Substance: ESZOPICLONE

REACTIONS (2)
  - Lipase abnormal [Not Recovered/Not Resolved]
  - Amylase abnormal [Not Recovered/Not Resolved]

NARRATIVE: CASE EVENT DATE: 201509
